FAERS Safety Report 5799320-8 (Version None)
Quarter: 2008Q3

REPORT INFORMATION
  Report Type: 
  Country: None (occurrence: None)
  Receive Date: 20080702
  Receipt Date: 20080623
  Transmission Date: 20090109
  Serious: Yes (Hospitalization)
  Sender: FDA-Public Use
  Company Number: US-PFIZER INC-2008052754

PATIENT
  Sex: Female

DRUGS (6)
  1. IRINOTECAN HCL [Suspect]
     Dosage: DAILY DOSE:300MG
     Route: 042
     Dates: start: 20070305, end: 20070416
  2. PANITUMUMAB [Suspect]
     Indication: COLORECTAL CANCER
     Dosage: DAILY DOSE:426MG
     Route: 042
     Dates: start: 20070305, end: 20070416
  3. LEUCOVORIN CALCIUM [Suspect]
     Dosage: DAILY DOSE:800MG
     Route: 042
     Dates: start: 20070305, end: 20070416
  4. FLUOROURACIL [Suspect]
     Route: 042
     Dates: start: 20070305, end: 20070416
  5. MULTI-VITAMINS [Concomitant]
     Route: 048
  6. CALCIUM WITH VITAMIN D [Concomitant]
     Route: 048

REACTIONS (3)
  - DEHYDRATION [None]
  - HYPOKALAEMIA [None]
  - NAUSEA [None]
